FAERS Safety Report 5827009-5 (Version None)
Quarter: 2008Q3

REPORT INFORMATION
  Report Type: 
  Country: None (occurrence: None)
  Receive Date: 20080730
  Receipt Date: 20080729
  Transmission Date: 20090109
  Serious: Yes (Other)
  Sender: FDA-Public Use
  Company Number: A0740095A

PATIENT
  Age: 28 Year
  Sex: Female
  Weight: 75 kg

DRUGS (1)
  1. ALLI [Suspect]
     Route: 048
     Dates: start: 20080711

REACTIONS (3)
  - PHARMACEUTICAL PRODUCT COMPLAINT [None]
  - RECTAL DISCHARGE [None]
  - RECTAL HAEMORRHAGE [None]
